FAERS Safety Report 9846221 (Version 1)
Quarter: 2014Q1

REPORT INFORMATION
  Report Type: Spontaneous
  Country: HR (occurrence: HR)
  Receive Date: 20140127
  Receipt Date: 20140127
  Transmission Date: 20141002
  Serious: Yes (Other)
  Sender: FDA-Public Use
  Company Number: HR-ROXANE LABORATORIES, INC.-2014-RO-00082RO

PATIENT
  Age: 43 Year
  Sex: Female

DRUGS (5)
  1. LEVETIRACETAM [Suspect]
     Indication: EPILEPSY
     Dosage: 750 MG
  2. OXCARBAZEPINE [Suspect]
     Indication: EPILEPSY
     Dosage: 900 NR
  3. SODIUM VALPROATE [Concomitant]
     Dosage: 1000 MG
  4. CLONAZEPAM [Concomitant]
     Dosage: 4.5 MG
  5. LAMOTRIGINE [Concomitant]
     Dosage: 100 MG

REACTIONS (4)
  - Nystagmus [Recovered/Resolved]
  - Dizziness [Recovered/Resolved]
  - Somnolence [Recovered/Resolved]
  - Urticaria [Not Recovered/Not Resolved]
